FAERS Safety Report 10269594 (Version 2)
Quarter: 2014Q3

REPORT INFORMATION
  Report Type: Spontaneous
  Country: FR (occurrence: None)
  Receive Date: 20140606
  Receipt Date: 20140718
  Transmission Date: 20150326
  Serious: Yes (Hospitalization)
  Sender: FDA-Public Use
  Company Number: GAM-174-14-FR

PATIENT
  Age: 84 Year
  Sex: Female

DRUGS (1)
  1. OCTAGAM IMMUNE GLOBULIN (HUMAN) [Suspect]
     Active Substance: HUMAN IMMUNOGLOBULIN G
     Indication: POLYNEUROPATHY
     Dosage: 100 G (1X 1/ TOTAL)
     Route: 042
     Dates: start: 20140415, end: 20140419

REACTIONS (3)
  - Cytomegalovirus test positive [None]
  - Transient ischaemic attack [None]
  - Aphasia [None]

NARRATIVE: CASE EVENT DATE: 20140421
